FAERS Safety Report 6030238-1 (Version None)
Quarter: 2008Q4

REPORT INFORMATION
  Report Type: 
  Country: None (occurrence: None)
  Receive Date: 20081222
  Receipt Date: 20080915
  Transmission Date: 20090506
  Serious: Yes (Other)
  Sender: FDA-Public Use
  Company Number: US-WYE-H05440508

PATIENT
  Age: 40 Year
  Sex: Female
  Weight: 66.74 kg

DRUGS (2)
  1. PRISTIQ [Suspect]
     Indication: DEPRESSION
     Dosage: 50 MG 1X PER 1 DAY, ORAL
     Route: 048
     Dates: start: 20080624, end: 20080725
  2. LISINOPRIL [Concomitant]

REACTIONS (1)
  - CONVULSION [None]
